FAERS Safety Report 7876993-7 (Version None)
Quarter: 2011Q4

REPORT INFORMATION
  Report Type: 
  Country: None (occurrence: None)
  Receive Date: 20111031
  Receipt Date: 20111024
  Transmission Date: 20120403
  Serious: Yes (Hospitalization)
  Sender: FDA-Public Use
  Company Number: PHHY2011PL93794

PATIENT
  Sex: Female

DRUGS (2)
  1. METHYLPREDNISOLONE [Concomitant]
     Dosage: 4 MG, DAILY DOSE
     Route: 048
  2. METHOTREXATE [Suspect]
     Indication: RHEUMATOID ARTHRITIS
     Dosage: 10 MG, DAILY DOSE
     Route: 048
     Dates: start: 20110928, end: 20110928

REACTIONS (1)
  - GASTROINTESTINAL DISORDER [None]
